FAERS Safety Report 4668207-6 (Version None)
Quarter: 2005Q2

REPORT INFORMATION
  Report Type: 
  Country: None (occurrence: None)
  Receive Date: 20050523
  Receipt Date: 20041221
  Transmission Date: 20051028
  Serious: Yes (Other)
  Sender: FDA-Public Use
  Company Number: PHEH2004US13579

PATIENT
  Age: 61 Year
  Sex: Female

DRUGS (3)
  1. PAMIDRONATE DISODIUM [Suspect]
     Dosage: 90 MG Q4WK
  2. DEXAMETHASONE [Concomitant]
     Dosage: 40MG X4DAYS Q4WK
     Dates: start: 20000801, end: 20001201
  3. MELPHALAN [Concomitant]
     Dosage: 70MG/M2 X 2 DAYS
     Dates: start: 20010101

REACTIONS (2)
  - JAW DISORDER [None]
  - OSTEONECROSIS [None]
